FAERS Safety Report 7906152 (Version 2)
Quarter: 2013Q3

REPORT INFORMATION
  Report Type: Report from Study
  Country: NL (occurrence: NL)
  Receive Date: 20110420
  Receipt Date: 20130930
  Transmission Date: 20140515
  Serious: Yes (Hospitalization)
  Sender: FDA-Public Use
  Company Number: NL-MEDIMMUNE-MEDI-0013087

PATIENT
  Age: 13 Month
  Sex: Male
  Weight: 8.1 kg

DRUGS (4)
  1. SYNAGIS [Suspect]
     Indication: ANTIVIRAL PROPHYLAXIS
     Route: 030
     Dates: start: 20100921, end: 20110317
  2. SYNAGIS [Suspect]
     Indication: ANTIVIRAL PROPHYLAXIS
     Route: 030
     Dates: start: 20110414
  3. SALBUTAMOL [Concomitant]
  4. BECLOMETASONE DIPROPIONATE [Concomitant]

REACTIONS (4)
  - Respiratory tract infection [Unknown]
  - Oligodipsia [Unknown]
  - Decreased appetite [Unknown]
  - Dyspnoea [Unknown]
